FAERS Safety Report 6522175-0 (Version None)
Quarter: 2009Q4

REPORT INFORMATION
  Report Type: 
  Country: None (occurrence: None)
  Receive Date: 20091230
  Receipt Date: 20091218
  Transmission Date: 20100525
  Serious: Yes (Other)
  Sender: FDA-Public Use
  Company Number: US-JNJFOC-20091206074

PATIENT
  Age: 32 Year
  Sex: Female

DRUGS (6)
  1. INFLIXIMAB [Suspect]
     Indication: PSORIASIS
     Dosage: APPROXIMATELY 1 YEAR OF MAINTENANCE THERAPY
     Route: 042
  2. INFLIXIMAB [Suspect]
     Indication: CROHN'S DISEASE
     Route: 042
  3. CYCLOSPORINE [Concomitant]
     Indication: PSORIASIS
  4. TPN [Concomitant]
     Indication: MEDICAL DIET
  5. MESALAMINE [Concomitant]
  6. LANSOPRAZOLE [Concomitant]

REACTIONS (3)
  - ABORTION SPONTANEOUS [None]
  - DRUG EXPOSURE DURING PREGNANCY [None]
  - THERAPEUTIC RESPONSE UNEXPECTED [None]
